FAERS Safety Report 5463626-2 (Version None)
Quarter: 2007Q3

REPORT INFORMATION
  Report Type: 
  Country: None (occurrence: None)
  Receive Date: 20070920
  Receipt Date: 20070913
  Transmission Date: 20080115
  Serious: Yes (Other)
  Sender: FDA-Public Use
  Company Number: CH-ABBOTT-07P-151-0416973-00

PATIENT
  Age: 62 Year
  Sex: Female
  Weight: 51 kg

DRUGS (7)
  1. KLACID [Suspect]
     Indication: MYCOBACTERIUM AVIUM COMPLEX INFECTION
     Route: 048
     Dates: start: 20070324
  2. KLACID [Suspect]
     Indication: BRONCHIECTASIS
  3. KLACID [Suspect]
     Indication: PULMONARY SARCOIDOSIS
  4. RIFABUTIN [Interacting]
     Indication: MYCOBACTERIUM AVIUM COMPLEX INFECTION
     Route: 048
     Dates: start: 20070324, end: 20070615
  5. RIFABUTIN [Interacting]
     Indication: BRONCHIECTASIS
     Route: 048
     Dates: start: 20070615
  6. RIFABUTIN [Interacting]
     Indication: PULMONARY SARCOIDOSIS
  7. ETHAMBUTOL DIHYDROCHLORIDE [Concomitant]
     Indication: MYCOBACTERIUM AVIUM COMPLEX INFECTION
     Route: 048
     Dates: start: 20070324

REACTIONS (6)
  - ARTHRALGIA [None]
  - DRUG INTERACTION [None]
  - DRUG LEVEL INCREASED [None]
  - LEUKOPENIA [None]
  - NEUTROPENIA [None]
  - OEDEMA PERIPHERAL [None]
